FAERS Safety Report 22647732 (Version 1)
Quarter: 2023Q2

REPORT INFORMATION
  Report Type: Spontaneous
  Country: BR (occurrence: BR)
  Receive Date: 20230628
  Receipt Date: 20230628
  Transmission Date: 20230722
  Serious: Yes (Other)
  Sender: FDA-Public Use
  Company Number: BR-TAKEDA-2023TUS062338

PATIENT
  Sex: Male

DRUGS (5)
  1. DIBUCAINE\POLICRESULEN [Suspect]
     Active Substance: DIBUCAINE\POLICRESULEN
     Indication: Product used for unknown indication
     Dosage: UNK
     Route: 065
  2. DIBUCAINE\POLICRESULEN [Suspect]
     Active Substance: DIBUCAINE\POLICRESULEN
     Indication: Haemorrhoids
     Dosage: UNK
     Route: 065
  3. MESALAMINE [Suspect]
     Active Substance: MESALAMINE
     Indication: Haemorrhoids
     Dosage: UNK
     Route: 065
  4. AMLODIPINE BESYLATE [Concomitant]
     Active Substance: AMLODIPINE BESYLATE
     Dosage: 5 MILLIGRAM
  5. LOSARTAN [Concomitant]
     Active Substance: LOSARTAN
     Dosage: 50 MILLIGRAM

REACTIONS (11)
  - Haemorrhage [Unknown]
  - Haematochezia [Unknown]
  - Off label use [Unknown]
  - Product use issue [Unknown]
  - Abdominal distension [Unknown]
  - Anal dilatation [Unknown]
  - Product quality issue [Unknown]
  - Blood pressure increased [Unknown]
  - Blood cholesterol abnormal [Unknown]
  - Abdominal pain [Unknown]
  - Pruritus [Unknown]
